FAERS Safety Report 5684069-2 (Version None)
Quarter: 2008Q1

REPORT INFORMATION
  Report Type: 
  Country: None (occurrence: None)
  Receive Date: 20080328
  Receipt Date: 20080327
  Transmission Date: 20080703
  Serious: Yes (Other)
  Sender: FDA-Public Use
  Company Number: HQWYE353012FEB03

PATIENT
  Age: 38 Year
  Sex: Female

DRUGS (7)
  1. VENLAFAXINE HYDROCHLORIDE [Suspect]
     Indication: DEPRESSION
     Dosage: 75 MG
     Route: 048
     Dates: start: 20020419, end: 20020524
  2. VENLAFAXINE HYDROCHLORIDE [Suspect]
     Indication: POST-TRAUMATIC STRESS DISORDER
  3. PAROXETINE HCL [Concomitant]
     Indication: DEPRESSION
     Dosage: 20-30 MG
     Route: 048
     Dates: start: 20020101, end: 20020101
  4. TEMAZEPAM [Concomitant]
     Indication: DEPRESSION
     Dosage: UNKNOWN
     Route: 048
  5. ZOPICLONE [Suspect]
     Indication: DEPRESSION
     Dosage: 7.5 MG AT NIGHT
     Route: 048
     Dates: start: 20020419, end: 20020524
  6. AMITRIPTYLINE HCL [Concomitant]
     Indication: POST-TRAUMATIC STRESS DISORDER
     Dosage: 25 MG
     Route: 048
     Dates: end: 20020323
  7. AMITRIPTYLINE HCL [Concomitant]
     Indication: DEPRESSION

REACTIONS (4)
  - ARTHRALGIA [None]
  - DYSGEUSIA [None]
  - POLLAKIURIA [None]
  - RAYNAUD'S PHENOMENON [None]
